FAERS Safety Report 22597080 (Version 18)
Quarter: 2024Q4

REPORT INFORMATION
  Report Type: Report from Study
  Country: CA (occurrence: CA)
  Receive Date: 20230613
  Receipt Date: 20241113
  Transmission Date: 20250115
  Serious: Yes (Hospitalization, Other)
  Sender: JOHNSON AND JOHNSON
  Company Number: CA-JNJFOC-20230465061

PATIENT
  Age: 70 Year
  Sex: Female

DRUGS (13)
  1. REMICADE [Suspect]
     Active Substance: INFLIXIMAB
     Indication: Crohn^s disease
     Dosage: EXPIRATION DATE 30-SEP-2025?ON 08-JUN-2023, PATIENT RECEIVED 21ST INFLIXIMAB RECOMBINANT INFUSION OF
     Route: 041
     Dates: start: 20201211
  2. REMICADE [Suspect]
     Active Substance: INFLIXIMAB
     Dosage: EXPIRATION DATE 30-SEP-2025, -FEB-2027?ON 08-JUN-2023, PATIENT RECEIVED 21ST INFLIXIMAB RECOMBINANT
     Route: 041
     Dates: start: 20201211
  3. REMICADE [Suspect]
     Active Substance: INFLIXIMAB
     Route: 041
  4. REMICADE [Suspect]
     Active Substance: INFLIXIMAB
     Route: 041
  5. REMICADE [Suspect]
     Active Substance: INFLIXIMAB
     Route: 041
  6. REMICADE [Suspect]
     Active Substance: INFLIXIMAB
     Dosage: EXPIRY: OC 2026?EXPIRY DATE: NO-2026
     Route: 041
  7. RIFAXIMIN [Concomitant]
     Active Substance: RIFAXIMIN
  8. POLYETHYLENE GLYCOL 3350\POTASSIUM CHLORIDE\SODIUM BICARBONATE\SODIUM [Concomitant]
     Active Substance: POLYETHYLENE GLYCOL 3350\POTASSIUM CHLORIDE\SODIUM BICARBONATE\SODIUM CHLORIDE\SODIUM SULFATE
  9. AZATHIOPRINE [Concomitant]
     Active Substance: AZATHIOPRINE
  10. DOCUSATE [Concomitant]
     Active Substance: DOCUSATE
  11. METOCLOPRAMIDE [Concomitant]
     Active Substance: METOCLOPRAMIDE
  12. PANTOPRAZOLE [Concomitant]
     Active Substance: PANTOPRAZOLE
  13. POLYETHYLENE GLYCOL 3350 [Concomitant]
     Active Substance: POLYETHYLENE GLYCOL 3350

REACTIONS (16)
  - Pneumonia [Recovering/Resolving]
  - Intestinal obstruction [Recovered/Resolved]
  - Weight decreased [Not Recovered/Not Resolved]
  - Crohn^s disease [Not Recovered/Not Resolved]
  - Pain [Not Recovered/Not Resolved]
  - Respiratory disorder [Unknown]
  - Insomnia [Unknown]
  - Vomiting [Unknown]
  - Nausea [Unknown]
  - Pain [Recovering/Resolving]
  - Constipation [Recovered/Resolved]
  - Nasopharyngitis [Recovered/Resolved]
  - Conjunctivitis [Recovered/Resolved]
  - Gastrooesophageal reflux disease [Unknown]
  - Flatulence [Recovering/Resolving]
  - Dizziness [Not Recovered/Not Resolved]

NARRATIVE: CASE EVENT DATE: 20230101
